FAERS Safety Report 7249088-3 (Version None)
Quarter: 2011Q1

REPORT INFORMATION
  Report Type: 
  Country: None (occurrence: None)
  Receive Date: 20110128
  Receipt Date: 20101006
  Transmission Date: 20110831
  Serious: Yes (Hospitalization, Other)
  Sender: FDA-Public Use
  Company Number: US-BAYER-201034785NA

PATIENT
  Sex: Female
  Weight: 52 kg

DRUGS (12)
  1. YASMIN [Suspect]
     Indication: ACNE
     Dosage: UNK
     Dates: start: 20050101, end: 20060101
  2. YASMIN [Suspect]
     Indication: CONTRACEPTION
     Dosage: UNK
     Dates: start: 20040217, end: 20051201
  3. TORADOL [Concomitant]
  4. DICLOFENAC POTASSIUM [Concomitant]
     Indication: MUSCLE SPASMS
     Dosage: 50 UNK, UNK
     Route: 048
     Dates: start: 20050919
  5. YAZ [Suspect]
     Indication: CONTRACEPTION
     Dosage: UNK
     Dates: start: 20090705
  6. ADVIL [Concomitant]
  7. HYDROCODONE BITARTRATE [Concomitant]
     Dosage: UNK
     Route: 048
     Dates: start: 20060306
  8. NASONEX [Concomitant]
     Dosage: UNK
     Dates: start: 20060306
  9. IBUPROFEN [Concomitant]
  10. LORA TAB [Concomitant]
  11. AMOXICILLIN [Concomitant]
     Dosage: 875 MG, BID
     Route: 048
     Dates: start: 20060306
  12. YAZ [Suspect]
     Indication: ACNE
     Dosage: UNK
     Dates: start: 20050101, end: 20060101

REACTIONS (7)
  - RENAL FAILURE [None]
  - VOMITING [None]
  - RENAL FAILURE ACUTE [None]
  - PROTEINURIA [None]
  - ABDOMINAL DISCOMFORT [None]
  - NAUSEA [None]
  - DEHYDRATION [None]
